FAERS Safety Report 8407103-5 (Version None)
Quarter: 2012Q2

REPORT INFORMATION
  Report Type: 
  Country: None (occurrence: None)
  Receive Date: 20120604
  Receipt Date: 20120522
  Transmission Date: 20120825
  Serious: No
  Sender: FDA-Public Use
  Company Number: US-B.I. PHARMACEUTICALS,INC./RIDGEFIELD-2012-BP-11397BP

PATIENT
  Age: 65 Year
  Sex: Male

DRUGS (3)
  1. MIRAPEX [Suspect]
     Indication: PARKINSON'S DISEASE
     Dosage: 6 MG
     Route: 048
     Dates: start: 20080101
  2. MESALIMINE [Concomitant]
     Indication: COLITIS ULCERATIVE
  3. MIRAPEX [Suspect]
     Dosage: 4.5 MG
     Route: 048
     Dates: start: 20120101

REACTIONS (3)
  - MUSCULOSKELETAL STIFFNESS [None]
  - GAIT DISTURBANCE [None]
  - INCORRECT DOSE ADMINISTERED [None]
